FAERS Safety Report 15186959 (Version 2)
Quarter: 2019Q1

REPORT INFORMATION
  Report Type: Report from Study
  Country: US (occurrence: US)
  Receive Date: 20180723
  Receipt Date: 20190130
  Transmission Date: 20190417
  Serious: No
  Sender: FDA-Public Use
  Company Number: US-EXELIXIS-CABO-18012440

PATIENT
  Sex: Male
  Weight: 90.7 kg

DRUGS (16)
  1. ATORVASTATIN CALCIUM. [Concomitant]
     Active Substance: ATORVASTATIN CALCIUM
  2. OXYCODONE AND ACETAMINOPHEN [Concomitant]
     Active Substance: ACETAMINOPHEN\OXYCODONE HYDROCHLORIDE
  3. COLCHICINE. [Concomitant]
     Active Substance: COLCHICINE
  4. CABOMETYX [Suspect]
     Active Substance: CABOZANTINIB S-MALATE
     Dosage: 20 MG, QD
     Route: 048
     Dates: start: 201702
  5. CURCUMIN [Concomitant]
     Active Substance: CURCUMIN
  6. TURMERIC [Concomitant]
     Active Substance: HERBALS\TURMERIC
  7. CABOMETYX [Suspect]
     Active Substance: CABOZANTINIB S-MALATE
     Indication: RENAL CELL CARCINOMA
     Dosage: 20 MG, MWF ALTERNATING WITH 40MG THE OTHER DAYS
     Route: 048
     Dates: start: 201702
  8. CARISOPRODOL. [Concomitant]
     Active Substance: CARISOPRODOL
  9. PROBIOTIC ACIDOPHILUS [Concomitant]
     Active Substance: LACTOBACILLUS ACIDOPHILUS
  10. TRIAMCINOLONE ACETONIDE. [Concomitant]
     Active Substance: TRIAMCINOLONE ACETONIDE
  11. DIPHENOXYLATE/ATROPINE [Concomitant]
     Active Substance: ATROPINE\DIPHENOXYLATE
  12. OXYCODONE HYDROCHLORIDE. [Concomitant]
     Active Substance: OXYCODONE HYDROCHLORIDE
  13. CEPHALEXIN. [Concomitant]
     Active Substance: CEPHALEXIN
  14. VITAMIN D3 [Concomitant]
     Active Substance: CHOLECALCIFEROL
  15. CARVEDILOL. [Concomitant]
     Active Substance: CARVEDILOL
  16. ELIQUIS [Concomitant]
     Active Substance: APIXABAN

REACTIONS (4)
  - Oedema peripheral [Unknown]
  - Muscle spasms [Unknown]
  - Myalgia [Unknown]
  - Fatigue [Unknown]
